FAERS Safety Report 22315424 (Version 1)
Quarter: 2023Q2

REPORT INFORMATION
  Report Type: Spontaneous
  Country: US (occurrence: None)
  Receive Date: 20230511
  Receipt Date: 20230511
  Transmission Date: 20230721
  Serious: Yes (Death, Hospitalization)
  Sender: FDA-Public Use
  Company Number: None

PATIENT
  Age: 52 Year
  Sex: Male

DRUGS (1)
  1. OPSUMIT [Suspect]
     Active Substance: MACITENTAN
     Indication: Pulmonary arterial hypertension
     Dosage: FREQUENCY : DAILY;?
     Route: 048
     Dates: start: 20151119, end: 20230429

REACTIONS (5)
  - Cardiac failure [None]
  - Obstructive sleep apnoea syndrome [None]
  - Right ventricular failure [None]
  - Cardiac failure [None]
  - Dyspnoea [None]

NARRATIVE: CASE EVENT DATE: 20230429
